FAERS Safety Report 8025205-2 (Version None)
Quarter: 2012Q1

REPORT INFORMATION
  Report Type: 
  Country: None (occurrence: None)
  Receive Date: 20120105
  Receipt Date: 20111229
  Transmission Date: 20120608
  Serious: Yes (Other)
  Sender: FDA-Public Use
  Company Number: JP-GLAXOSMITHKLINE-B0772306A

PATIENT
  Age: 6 Decade
  Sex: Male

DRUGS (3)
  1. ARASENA-A [Concomitant]
     Route: 065
  2. LOXONIN [Concomitant]
     Route: 048
  3. VALTREX [Suspect]
     Indication: HERPES ZOSTER
     Route: 048
     Dates: start: 20111228

REACTIONS (2)
  - INTRAOCULAR PRESSURE INCREASED [None]
  - EYE PAIN [None]
